FAERS Safety Report 15019859 (Version 2)
Quarter: 2018Q2

REPORT INFORMATION
  Report Type: Spontaneous
  Country: GB (occurrence: GB)
  Receive Date: 20180618
  Receipt Date: 20180621
  Transmission Date: 20180711
  Serious: Yes (Hospitalization)
  Sender: FDA-Public Use
  Company Number: GB-TEVA-2018-GB-907914

PATIENT

DRUGS (4)
  1. NEBIVOLOL. [Suspect]
     Active Substance: NEBIVOLOL
     Route: 065
     Dates: start: 20180417
  2. NEBIVOLOL. [Suspect]
     Active Substance: NEBIVOLOL
     Indication: PRODUCT USED FOR UNKNOWN INDICATION
     Dosage: 10 MILLIGRAM DAILY;
     Route: 065
     Dates: start: 20180417
  3. AMIODARONE [Concomitant]
     Active Substance: AMIODARONE
     Indication: PRODUCT USED FOR UNKNOWN INDICATION
     Route: 065
  4. NEBIVOLOL. [Suspect]
     Active Substance: NEBIVOLOL
     Dosage: 4 DOSAGE FORMS DAILY; 5 MG IN THE MORNING AND 3.75 IN THE EVENING
     Route: 065

REACTIONS (6)
  - Hyperaesthesia [Not Recovered/Not Resolved]
  - Blister [Recovering/Resolving]
  - Purulent discharge [Recovering/Resolving]
  - Pruritus [Recovering/Resolving]
  - Skin erosion [Recovering/Resolving]
  - Skin haemorrhage [Recovering/Resolving]
